FAERS Safety Report 6737908-8 (Version None)
Quarter: 2010Q2

REPORT INFORMATION
  Report Type: 
  Country: None (occurrence: None)
  Receive Date: 20100524
  Receipt Date: 20100513
  Transmission Date: 20101027
  Serious: Yes (Hospitalization)
  Sender: FDA-Public Use
  Company Number: PHHY2010JP25624

PATIENT
  Sex: Male

DRUGS (4)
  1. VOLTAREN [Suspect]
     Indication: ANALGESIC THERAPY
     Dosage: 50 MG DAILY
     Route: 054
     Dates: start: 20070509, end: 20100406
  2. PRAVASTATIN SODIUM [Concomitant]
     Dosage: 10 MG
     Route: 048
     Dates: start: 20070611
  3. URINORM [Concomitant]
     Dosage: 50 MG
     Route: 048
     Dates: start: 20070605
  4. ALLOZYM [Concomitant]
     Dosage: 100 MG
     Route: 048
     Dates: start: 20080802

REACTIONS (4)
  - GASTRIC DISORDER [None]
  - GASTRIC ULCER HAEMORRHAGE [None]
  - HAEMATEMESIS [None]
  - TREATMENT NONCOMPLIANCE [None]
